FAERS Safety Report 4307054-1 (Version None)
Quarter: 2004Q1

REPORT INFORMATION
  Report Type: 
  Country: None (occurrence: None)
  Receive Date: 20040225
  Receipt Date: 20040212
  Transmission Date: 20041129
  Serious: Yes (Life-Threatening, Hospitalization)
  Sender: FDA-Public Use
  Company Number: 204136

PATIENT
  Age: 59 Year
  Sex: Male
  Weight: 116 kg

DRUGS (1)
  1. MABTHERA (RITUXIMAB) [Suspect]
     Indication: B-CELL LYMPHOMA
     Dosage: UNK, INTRAVENOUS
     Route: 042
     Dates: start: 20000101, end: 20031001

REACTIONS (12)
  - CHOLANGITIS [None]
  - CHOLESTASIS [None]
  - GENERAL PHYSICAL HEALTH DETERIORATION [None]
  - HEPATIC CIRRHOSIS [None]
  - HEPATIC ENCEPHALOPATHY [None]
  - HEPATIC FAILURE [None]
  - HEPATIC FIBROSIS [None]
  - HEPATIC NECROSIS [None]
  - HEPATITIS TOXIC [None]
  - HEPATOCELLULAR DAMAGE [None]
  - PORTAL HYPERTENSION [None]
  - SPLENOMEGALY [None]
